FAERS Safety Report 12569453 (Version 2)
Quarter: 2016Q3

REPORT INFORMATION
  Report Type: Spontaneous
  Country: US (occurrence: US)
  Receive Date: 20160719
  Receipt Date: 20160808
  Transmission Date: 20161109
  Serious: Yes (Other)
  Sender: FDA-Public Use
  Company Number: US-PFIZER INC-2016348679

PATIENT
  Age: 90 Year
  Sex: Male

DRUGS (1)
  1. LYRICA [Suspect]
     Active Substance: PREGABALIN
     Dosage: 50 MG, 1X/DAY

REACTIONS (7)
  - Headache [Unknown]
  - Dizziness [Unknown]
  - Extrasystoles [Unknown]
  - Hypertension [Unknown]
  - Drug hypersensitivity [Unknown]
  - Tachycardia [Unknown]
  - Heart rate irregular [Unknown]
